FAERS Safety Report 6640334-3 (Version None)
Quarter: 2010Q1

REPORT INFORMATION
  Report Type: 
  Country: None (occurrence: None)
  Receive Date: 20100318
  Receipt Date: 20100310
  Transmission Date: 20100710
  Serious: Yes (Death, Other)
  Sender: FDA-Public Use
  Company Number: JP-ROCHE-691271

PATIENT
  Age: 70 Year
  Sex: Male

DRUGS (3)
  1. AVASTIN [Suspect]
     Indication: COLON CANCER METASTATIC
     Route: 041
  2. ELPLAT [Concomitant]
     Route: 041
  3. FLUOROURACIL [Concomitant]
     Dosage: ROUTE: DRIP AND  BOLUS
     Route: 042

REACTIONS (2)
  - LARGE INTESTINE PERFORATION [None]
  - PNEUMONIA [None]
